FAERS Safety Report 21048811 (Version 1)
Quarter: 2022Q3

REPORT INFORMATION
  Report Type: Spontaneous
  Country: US (occurrence: None)
  Receive Date: 20220701
  Receipt Date: 20220701
  Transmission Date: 20221027
  Serious: Yes (unspecified)
  Sender: FDA-Public Use
  Company Number: None

PATIENT
  Sex: Male

DRUGS (2)
  1. ANASTROZOLE\TESTOSTERONE CYPIONATE [Suspect]
     Active Substance: ANASTROZOLE\TESTOSTERONE CYPIONATE
     Indication: Hormone replacement therapy
     Dosage: OTHER FREQUENCY : EVERY WEEK;?
     Route: 030
  2. Gonadorelin 0.2mg/ml [Concomitant]

REACTIONS (2)
  - Recalled product administered [None]
  - Injection site infection [None]
